FAERS Safety Report 21505507 (Version 2)
Quarter: 2022Q4

REPORT INFORMATION
  Report Type: Spontaneous
  Country: IT (occurrence: IT)
  Receive Date: 20221026
  Receipt Date: 20221115
  Transmission Date: 20230112
  Serious: Yes (Other)
  Sender: FDA-Public Use
  Company Number: IT-BAXTER-2022BAX022494

PATIENT
  Age: 37 Year
  Sex: Male

DRUGS (16)
  1. DOXORUBICIN [Suspect]
     Active Substance: DOXORUBICIN
     Indication: Diffuse large B-cell lymphoma
     Dosage: UNK, UNKNOWN FREQUENCY
     Route: 065
     Dates: start: 20220324, end: 20220329
  2. DOXORUBICIN [Suspect]
     Active Substance: DOXORUBICIN
     Dosage: UNK, UNKNOWN FREQUENCY
     Route: 065
     Dates: start: 20220502, end: 20220531
  3. IFOSFAMIDE [Suspect]
     Active Substance: IFOSFAMIDE
     Indication: Diffuse large B-cell lymphoma
     Dosage: UNK, UNKNOWN FREQUENCY
     Route: 065
     Dates: start: 20220617, end: 20220624
  4. CYCLOPHOSPHAMIDE [Suspect]
     Active Substance: CYCLOPHOSPHAMIDE
     Indication: Diffuse large B-cell lymphoma
     Dosage: UNK, UNKNOWN FREQUENCY
     Route: 065
     Dates: start: 20220324, end: 20220329
  5. CYCLOPHOSPHAMIDE [Suspect]
     Active Substance: CYCLOPHOSPHAMIDE
     Dosage: UNK, UNKNOWN FREQUENCY
     Route: 065
     Dates: start: 20220502, end: 20220531
  6. BENDAMUSTINE HYDROCHLORIDE [Suspect]
     Active Substance: BENDAMUSTINE HYDROCHLORIDE
     Indication: Diffuse large B-cell lymphoma
     Dosage: UNK, CYCLIC
     Route: 042
  7. CYTARABINE [Suspect]
     Active Substance: CYTARABINE
     Indication: Diffuse large B-cell lymphoma
     Dosage: UNK, UNKNOWN FREQUENCY
     Route: 065
     Dates: start: 20220617, end: 20220624
  8. POLATUZUMAB VEDOTIN [Suspect]
     Active Substance: POLATUZUMAB VEDOTIN
     Indication: Diffuse large B-cell lymphoma
     Dosage: UNK, UNKNOWN FREQUENCY
     Route: 065
  9. RITUXIMAB [Suspect]
     Active Substance: RITUXIMAB
     Indication: Diffuse large B-cell lymphoma
     Dosage: UNK, UNKNOWN FREQUENCY
     Route: 042
     Dates: start: 20220324, end: 20220329
  10. RITUXIMAB [Suspect]
     Active Substance: RITUXIMAB
     Dosage: UNK, UNKNOWN FREQUENCY
     Route: 042
     Dates: start: 20220502, end: 20220531
  11. RITUXIMAB [Suspect]
     Active Substance: RITUXIMAB
     Dosage: UNK, UNKNOWN FREQUENCY
     Route: 042
     Dates: start: 20220617, end: 20220624
  12. ETOPOSIDE PHOSPHATE [Suspect]
     Active Substance: ETOPOSIDE PHOSPHATE
     Indication: Diffuse large B-cell lymphoma
     Dosage: UNK, UNKNOWN FREQUENCY
     Route: 065
     Dates: start: 20220324, end: 20220329
  13. VINCRISTINE [Suspect]
     Active Substance: VINCRISTINE
     Indication: Diffuse large B-cell lymphoma
     Dosage: UNK, UNKNOWN FREQUENCY
     Route: 065
     Dates: start: 20220324, end: 20220329
  14. VINCRISTINE [Suspect]
     Active Substance: VINCRISTINE
     Dosage: UNK, UNKNOWN FREQUENCY
     Route: 065
     Dates: start: 20220502, end: 20220531
  15. PREDNISONE [Suspect]
     Active Substance: PREDNISONE
     Indication: Diffuse large B-cell lymphoma
     Dosage: UNK, UNKNOWN FREQUENCY
     Route: 065
     Dates: start: 20220324, end: 20220329
  16. METHOTREXATE [Suspect]
     Active Substance: METHOTREXATE
     Indication: Diffuse large B-cell lymphoma
     Dosage: UNK, UNKNOWN FREQUENCY
     Route: 065

REACTIONS (3)
  - Malignant neoplasm progression [Unknown]
  - Off label use [Unknown]
  - Blood lactate dehydrogenase increased [Unknown]
